FAERS Safety Report 5243042-9 (Version None)
Quarter: 2007Q1

REPORT INFORMATION
  Report Type: 
  Country: None (occurrence: None)
  Receive Date: 20070215
  Receipt Date: 20070130
  Transmission Date: 20070707
  Serious: Yes (Hospitalization)
  Sender: FDA-Public Use
  Company Number: 236156

PATIENT
  Age: 3 Year
  Sex: Male
  Weight: 9.1 kg

DRUGS (3)
  1. NUTROPIN AQ [Suspect]
     Indication: GROWTH HORMONE DEFICIENCY
     Dosage: SEE IMAGE
     Route: 058
     Dates: start: 20040315, end: 20061125
  2. XOPENEX [Concomitant]
  3. PULMICORT [Concomitant]

REACTIONS (6)
  - CONGENITAL APLASTIC ANAEMIA [None]
  - COUGH [None]
  - HYPOGLYCAEMIA [None]
  - INSULIN-LIKE GROWTH FACTOR DECREASED [None]
  - ORAL INTAKE REDUCED [None]
  - PYREXIA [None]
